FAERS Safety Report 20701925 (Version 1)
Quarter: 2022Q2

REPORT INFORMATION
  Report Type: Spontaneous
  Country: FR (occurrence: FR)
  Receive Date: 20220412
  Receipt Date: 20220412
  Transmission Date: 20220721
  Serious: Yes (Hospitalization)
  Sender: FDA-Public Use
  Company Number: FR-AstraZeneca-2022A106604

PATIENT
  Age: 81 Year
  Sex: Female
  Weight: 48 kg

DRUGS (18)
  1. FENTANYL [Suspect]
     Active Substance: FENTANYL
     Indication: Product used for unknown indication
     Dosage: UNK
     Route: 065
     Dates: start: 20210428
  2. PANTOPRAZOLE [Suspect]
     Active Substance: PANTOPRAZOLE
     Indication: Product used for unknown indication
     Dosage: 1 DOSAGE FORM, QD, 1 TABLET IN THE EVENING
     Route: 065
  3. ACETAMINOPHEN [Suspect]
     Active Substance: ACETAMINOPHEN
     Indication: Product used for unknown indication
     Dosage: UNK
     Route: 065
  4. VENLAFAXINE [Suspect]
     Active Substance: VENLAFAXINE HYDROCHLORIDE
     Indication: Product used for unknown indication
     Dosage: 1 DOSAGE FORM, BID, 1 CAPSULE MORNING AND EVENING
     Route: 065
  5. CANDESARTAN [Suspect]
     Active Substance: CANDESARTAN
     Indication: Product used for unknown indication
     Dosage: 1 DOSAGE FORM, AM, 1 TABLET IN THE MORNING
     Route: 065
  6. LIDOCAINE HYDROCHLORIDE [Suspect]
     Active Substance: LIDOCAINE HYDROCHLORIDE
     Indication: Product used for unknown indication
     Dosage: UNK
     Route: 065
  7. HYDROCORTISONE [Suspect]
     Active Substance: HYDROCORTISONE
     Indication: Product used for unknown indication
     Dosage: UNK UNK, AM, 1.5 TABLET IN THE MORNING
     Route: 065
  8. LERCANIDIPINE [Suspect]
     Active Substance: LERCANIDIPINE
     Indication: Product used for unknown indication
     Dosage: 1 DOSAGE FORM, BID, 1 TABLET IN THE MORNING AND EVENING
     Route: 065
  9. AMITRIPTYLINE HYDROCHLORIDE [Suspect]
     Active Substance: AMITRIPTYLINE HYDROCHLORIDE
     Indication: Product used for unknown indication
     Dosage: 10 GTT DROPS, QD, 10 GTT, DAILY IN THE EVENING
     Route: 065
     Dates: start: 20210428
  10. CLONAZEPAM [Interacting]
     Active Substance: CLONAZEPAM
     Indication: Product used for unknown indication
     Dosage: 12 GTT DROPS, QD,  12 GTT, DAILY IN THE EVENING
     Route: 065
     Dates: start: 20210428
  11. LEVOTHYROXINE [Suspect]
     Active Substance: LEVOTHYROXINE
     Indication: Product used for unknown indication
     Dosage: 1 DOSAGE FORM, AM, 1 TABLET IN THE MORNING
     Route: 065
  12. MORPHINE SULFATE [Suspect]
     Active Substance: MORPHINE SULFATE
     Indication: Product used for unknown indication
     Dosage: 4 DOSAGE FORM, QD, 4 CAPSULES / DAY
     Route: 065
  13. TEGRETOL [Interacting]
     Active Substance: CARBAMAZEPINE
     Indication: Trigeminal neuralgia
     Dosage: 4 MILLILITER, TID, 4 ML, TID WEEK 2
     Route: 065
  14. TEGRETOL [Interacting]
     Active Substance: CARBAMAZEPINE
     Dosage: 5 MILLILITER, TID, 5 ML, TID WEEK 2
     Route: 065
  15. TEGRETOL [Interacting]
     Active Substance: CARBAMAZEPINE
     Dosage: 1 MILLILITER, TID, 1 ML, TID WEEK 1
     Route: 065
     Dates: start: 202104, end: 20210428
  16. TEGRETOL [Interacting]
     Active Substance: CARBAMAZEPINE
     Dosage: 3 MILLILITER, TID, 3 ML, TID WEEK 2
     Route: 065
  17. TEGRETOL [Interacting]
     Active Substance: CARBAMAZEPINE
     Dosage: 2 MILLILITER, TID, 2 ML, TID WEEK 2
     Route: 065
  18. KARDEGIC [Suspect]
     Active Substance: ASPIRIN DL-LYSINE
     Indication: Product used for unknown indication
     Dosage: UNK, 1 BAG AT NOON
     Route: 065

REACTIONS (2)
  - Dysarthria [Recovering/Resolving]
  - Ataxia [Recovering/Resolving]

NARRATIVE: CASE EVENT DATE: 20210428
